FAERS Safety Report 7016914-2 (Version None)
Quarter: 2010Q3

REPORT INFORMATION
  Report Type: 
  Country: None (occurrence: None)
  Receive Date: 20100927
  Receipt Date: 20100915
  Transmission Date: 20110219
  Serious: Yes (Hospitalization, Other)
  Sender: FDA-Public Use
  Company Number: DE-AMGEN-QUU438331

PATIENT
  Sex: Female
  Weight: 90 kg

DRUGS (36)
  1. ARANESP [Suspect]
     Indication: RENAL FAILURE CHRONIC
     Dates: start: 20090901, end: 20100702
  2. GLURENORM [Suspect]
  3. CARDIOVASCULAR SYSTEM DRUGS [Concomitant]
  4. METAMIZOLE [Concomitant]
  5. MARCUMAR [Concomitant]
  6. AMLODIPINE [Concomitant]
  7. METOPROLOL TARTRATE [Concomitant]
  8. CARVEDILOL [Concomitant]
  9. ENALAPRIL MALEATE [Concomitant]
  10. DIGOXIN [Concomitant]
  11. LEVOTHYROXINE SODIUM [Concomitant]
  12. METFORMIN [Concomitant]
  13. GLIMEPIRIDE [Concomitant]
  14. FUROSEMIDE [Concomitant]
  15. PRAVASTATIN [Concomitant]
  16. THEOPHYLLINE-SR [Concomitant]
  17. ALLOPURINOL [Concomitant]
  18. FERROUS SULFATE [Concomitant]
  19. PANTOPRAZOLE SODIUM [Concomitant]
  20. FORMOTEROL FUMARATE [Concomitant]
  21. PULMICORT [Concomitant]
  22. SPIRIVA [Concomitant]
  23. WOBENZYME [Concomitant]
  24. MULTI-VITAMINS [Concomitant]
  25. GARLIC [Concomitant]
  26. HERBAL SUPPLEMENT [Concomitant]
  27. SIMVASTATIN [Concomitant]
  28. CLEXANE [Concomitant]
  29. HEPARIN [Concomitant]
  30. INSULIN [Concomitant]
  31. PROTAPHANE MC [Concomitant]
  32. NOVORAPID FLEXPEN [Concomitant]
  33. LISINOPRIL [Concomitant]
  34. METAMIZOLE SODIUM [Concomitant]
  35. VITAMIN B-12 [Concomitant]
  36. TRAMADOL HCL [Concomitant]

REACTIONS (19)
  - ANAEMIA [None]
  - ANAL FISSURE [None]
  - APLASIA PURE RED CELL [None]
  - CARDIOACTIVE DRUG LEVEL INCREASED [None]
  - COLONIC POLYP [None]
  - CYSTITIS [None]
  - FATIGUE [None]
  - GASTRITIS EROSIVE [None]
  - HAEMORRHOIDS [None]
  - HYPOPNOEA [None]
  - LEFT VENTRICULAR FAILURE [None]
  - MUSCLE TWITCHING [None]
  - PAIN [None]
  - PLEURAL EFFUSION [None]
  - RECTAL HAEMORRHAGE [None]
  - REFRACTORY ANAEMIA [None]
  - RIGHT VENTRICULAR FAILURE [None]
  - VAGINAL ABSCESS [None]
  - VARICOSE VEIN [None]
